FAERS Safety Report 23971051 (Version 1)
Quarter: 2024Q2

REPORT INFORMATION
  Report Type: Spontaneous
  Country: GB (occurrence: GB)
  Receive Date: 20240613
  Receipt Date: 20240613
  Transmission Date: 20240716
  Serious: Yes (Other)
  Sender: FDA-Public Use
  Company Number: GB-SUN PHARMACEUTICAL INDUSTRIES LTD-2024RR-451313

PATIENT
  Sex: Female
  Weight: 129 kg

DRUGS (1)
  1. SUMATRIPTAN [Suspect]
     Active Substance: SUMATRIPTAN
     Indication: Migraine
     Dosage: UNK
     Route: 065

REACTIONS (2)
  - Hypoacusis [Recovered/Resolved with Sequelae]
  - Migraine [Not Recovered/Not Resolved]
